FAERS Safety Report 5434298-8 (Version None)
Quarter: 2007Q3

REPORT INFORMATION
  Report Type: 
  Country: None (occurrence: None)
  Receive Date: 20070831
  Receipt Date: 20070827
  Transmission Date: 20080115
  Serious: Yes (Other)
  Sender: FDA-Public Use
  Company Number: PHNU2005DE01955

PATIENT
  Age: 67 Year
  Sex: Female

DRUGS (8)
  1. ZOMETA [Suspect]
     Indication: METASTASES TO BONE
     Dosage: 4 MG, QMO
     Route: 042
     Dates: start: 20020308, end: 20050125
  2. AROMASIN [Concomitant]
     Indication: BREAST CANCER METASTATIC
     Dosage: UNK, UNK
     Route: 048
     Dates: start: 20040601, end: 20050125
  3. TAXOTERE [Concomitant]
     Dosage: 35 MG/M2, QW
     Dates: start: 20020401, end: 20020901
  4. NAVELBINE [Concomitant]
     Dosage: 25 MG/M2, QW
     Route: 065
     Dates: start: 20021101, end: 20040201
  5. DUROGESIC [Concomitant]
     Route: 062
     Dates: start: 20030401
  6. NOVAMINSULFON ^LICHTENSTEIN^ [Concomitant]
     Dosage: UNK, PRN
     Route: 048
  7. NEURONTIN [Concomitant]
     Dosage: 400 MG, QD
     Route: 048
     Dates: start: 20031101, end: 20040101
  8. RADIOTHERAPY [Concomitant]
     Indication: RADIOTHERAPY TO BONE
     Dosage: 40 GY
     Dates: start: 20020221, end: 20020325

REACTIONS (10)
  - IMPAIRED HEALING [None]
  - OSTEITIS [None]
  - OSTEOMYELITIS [None]
  - OSTEONECROSIS [None]
  - PRIMARY SEQUESTRUM [None]
  - SCINTIGRAPHY [None]
  - SEQUESTRECTOMY [None]
  - SUTURE INSERTION [None]
  - WOUND DEBRIDEMENT [None]
  - WOUND DEHISCENCE [None]
